FAERS Safety Report 18367839 (Version 1)
Quarter: 2020Q4

REPORT INFORMATION
  Report Type: Report from Study
  Country: DK (occurrence: DK)
  Receive Date: 20201009
  Receipt Date: 20201009
  Transmission Date: 20210114
  Serious: Yes (Hospitalization)
  Sender: FDA-Public Use
  Company Number: DK-INTERCEPT-CT2020001993

PATIENT
  Age: 42 Year
  Sex: Female
  Weight: 92 kg

DRUGS (11)
  1. OBETICHOLIC ACID [Suspect]
     Active Substance: OBETICHOLIC ACID
     Indication: PRIMARY BILIARY CHOLANGITIS
     Dosage: 5 MG, QD
     Route: 048
     Dates: start: 20170403
  2. ENALAPRIL [Concomitant]
     Active Substance: ENALAPRIL
     Indication: HYPERTENSION
     Dosage: 10 MG, QD
     Route: 048
     Dates: start: 20161219
  3. RIFAMPICIN [Concomitant]
     Active Substance: RIFAMPIN
     Indication: PRURITUS
     Dosage: 150 MG, QD
     Route: 048
     Dates: start: 20170210
  4. RIFAMPICIN [Concomitant]
     Active Substance: RIFAMPIN
     Indication: ULTRASOUND LIVER
  5. PARACETAMOL [Concomitant]
     Active Substance: ACETAMINOPHEN
     Indication: MYALGIA
     Dosage: 1000 MG, PRN
     Route: 048
     Dates: start: 20170209
  6. UDCA [Concomitant]
     Active Substance: URSODIOL
     Indication: PRIMARY BILIARY CHOLANGITIS
     Dosage: 1500 MG, QD
     Dates: start: 20110519
  7. UNIKALK MEGA [Concomitant]
     Indication: OSTEOPOROSIS
     Dosage: 400 MG, QD
     Route: 048
     Dates: start: 20140522
  8. LANSOPRAZOL [Concomitant]
     Active Substance: LANSOPRAZOLE
     Indication: GASTRIC PH DECREASED
     Dosage: 30 MG, BID
     Route: 048
     Dates: start: 20170502
  9. LANSOPRAZOL [Concomitant]
     Active Substance: LANSOPRAZOLE
     Indication: GASTROOESOPHAGEAL REFLUX DISEASE
  10. BRUFEN [Concomitant]
     Active Substance: IBUPROFEN
     Indication: MYALGIA
     Dosage: 400 MG, PRN
     Route: 048
     Dates: start: 20170123
  11. ZARATOR [Concomitant]
     Active Substance: ATORVASTATIN CALCIUM
     Indication: BLOOD CHOLESTEROL INCREASED
     Dosage: 20 MG, QD
     Route: 048
     Dates: start: 20200507

REACTIONS (1)
  - Ileus [Recovered/Resolved]

NARRATIVE: CASE EVENT DATE: 20200924
